FAERS Safety Report 5176955-7 (Version None)
Quarter: 2006Q4

REPORT INFORMATION
  Report Type: 
  Country: None (occurrence: None)
  Receive Date: 20061212
  Receipt Date: 20061212
  Transmission Date: 20070319
  Serious: No
  Sender: FDA-Public Use
  Company Number: None

PATIENT
  Age: 81 Year
  Sex: Female
  Weight: 68.0396 kg

DRUGS (1)
  1. LEUKINE [Suspect]
     Indication: BREAST CANCER
     Dosage: 450 MG QDAY SQ
     Route: 058
     Dates: start: 20061028

REACTIONS (2)
  - LOSS OF CONSCIOUSNESS [None]
  - PULSE ABSENT [None]
